FAERS Safety Report 12844345 (Version 1)
Quarter: 2016Q4

REPORT INFORMATION
  Report Type: Spontaneous
  Country: US (occurrence: US)
  Receive Date: 20161012
  Receipt Date: 20161012
  Transmission Date: 20170207
  Serious: No
  Sender: FDA-Public Use
  Company Number: None

PATIENT
  Age: 68 Year
  Sex: Female

DRUGS (7)
  1. FUROSEMIDE. [Concomitant]
     Active Substance: FUROSEMIDE
  2. FENTANYL. [Concomitant]
     Active Substance: FENTANYL
  3. POTASSIUM CHLORIDE. [Concomitant]
     Active Substance: POTASSIUM CHLORIDE
  4. FOLIC ACID. [Concomitant]
     Active Substance: FOLIC ACID
  5. OTEZLA [Suspect]
     Active Substance: APREMILAST
     Indication: PSORIATIC ARTHROPATHY
     Route: 048
     Dates: start: 20160811, end: 20161010
  6. PREDNISONE. [Concomitant]
     Active Substance: PREDNISONE
  7. ZOFRANT [Concomitant]

REACTIONS (2)
  - Depression [None]
  - Apathy [None]

NARRATIVE: CASE EVENT DATE: 20161010
